FAERS Safety Report 10219340 (Version 3)
Quarter: 2014Q4

REPORT INFORMATION
  Report Type: Spontaneous
  Country: CN (occurrence: CN)
  Receive Date: 20140605
  Receipt Date: 20141022
  Transmission Date: 20150528
  Serious: Yes (Hospitalization, Other)
  Sender: FDA-Public Use
  Company Number: PHHY2014CN052855

PATIENT
  Age: 76 Year
  Sex: Male

DRUGS (1)
  1. LESCOL [Suspect]
     Active Substance: FLUVASTATIN SODIUM
     Indication: PRODUCT USED FOR UNKNOWN INDICATION
     Dosage: 80 MG, QD
     Route: 048
     Dates: start: 20140129, end: 20140129

REACTIONS (11)
  - Muscular weakness [Unknown]
  - Haematuria [Recovering/Resolving]
  - Myalgia [Unknown]
  - Carotid artery stenosis [Recovering/Resolving]
  - Pain in extremity [Unknown]
  - Cerebral infarction [Recovering/Resolving]
  - Rhabdomyolysis [Recovering/Resolving]
  - Cerebral artery stenosis [Recovering/Resolving]
  - Blood creatine phosphokinase increased [Recovered/Resolved]
  - Peripheral swelling [Unknown]
  - Blood urine [Recovered/Resolved]

NARRATIVE: CASE EVENT DATE: 20140429
